FAERS Safety Report 10277157 (Version 2)
Quarter: 2014Q3

REPORT INFORMATION
  Report Type: Spontaneous
  Country: US (occurrence: US)
  Receive Date: 20140703
  Receipt Date: 20140703
  Transmission Date: 20150326
  Serious: Yes (Other)
  Sender: FDA-Public Use
  Company Number: CHPA2014US008700

PATIENT
  Sex: Female

DRUGS (3)
  1. BENEFIBER [Suspect]
     Active Substance: STARCH, WHEAT
     Indication: OFF LABEL USE
  2. BENEFIBER [Suspect]
     Active Substance: STARCH, WHEAT
     Indication: CONSTIPATION
     Dosage: UNK, EVERY MORNING IN HER COFFEE
     Route: 048
     Dates: start: 2006, end: 20140616
  3. EX-LAX UNKNOWN [Suspect]
     Active Substance: SENNOSIDES
     Indication: CONSTIPATION

REACTIONS (4)
  - Rash [Unknown]
  - Renal failure [Unknown]
  - Hepatic cancer [Unknown]
  - Colon cancer [Unknown]

NARRATIVE: CASE EVENT DATE: 2012
